FAERS Safety Report 9686454 (Version 2)
Quarter: 2013Q4

REPORT INFORMATION
  Report Type: Spontaneous
  Country: US (occurrence: US)
  Receive Date: 20131113
  Receipt Date: 20131113
  Transmission Date: 20140711
  Serious: No
  Sender: FDA-Public Use
  Company Number: US-BAXTER-2013BAX039858

PATIENT
  Sex: Male
  Weight: 24 kg

DRUGS (1)
  1. DIANEAL LOW CALCIUM [Suspect]
     Indication: PRODUCT USED FOR UNKNOWN INDICATION
     Route: 065

REACTIONS (2)
  - Product container issue [Recovered/Resolved]
  - No adverse event [Recovered/Resolved]
